FAERS Safety Report 19494606 (Version 1)
Quarter: 2021Q3

REPORT INFORMATION
  Report Type: Spontaneous
  Country: US (occurrence: US)
  Receive Date: 20210706
  Receipt Date: 20210706
  Transmission Date: 20211014
  Serious: Yes (Other)
  Sender: FDA-Public Use
  Company Number: US-CIPLA LTD.-2021US04494

PATIENT

DRUGS (1)
  1. BUPROPION. [Suspect]
     Active Substance: BUPROPION
     Indication: DEPRESSIVE SYMPTOM
     Dosage: UNK
     Route: 065

REACTIONS (3)
  - Urticaria [Recovered/Resolved]
  - Type IV hypersensitivity reaction [Recovered/Resolved]
  - Allergic reaction to excipient [Recovered/Resolved]
